FAERS Safety Report 18469080 (Version 2)
Quarter: 2020Q4

REPORT INFORMATION
  Report Type: Report from Study
  Country: GT (occurrence: GT)
  Receive Date: 20201105
  Receipt Date: 20201204
  Transmission Date: 20210114
  Serious: Yes (Other)
  Sender: FDA-Public Use
  Company Number: NVSC2020GT293617

PATIENT
  Age: 93 Year
  Sex: Female

DRUGS (1)
  1. VYMADA [Suspect]
     Active Substance: SACUBITRIL\VALSARTAN
     Indication: PRODUCT USED FOR UNKNOWN INDICATION
     Dosage: 50 MG, UNKNOWN (STATED 11 DAYS AGO)
     Route: 065

REACTIONS (4)
  - Cardiac disorder [Unknown]
  - Lung disorder [Unknown]
  - Heart rate irregular [Unknown]
  - Tachycardia [Unknown]
